FAERS Safety Report 11557820 (Version 1)
Quarter: 2015Q3

REPORT INFORMATION
  Report Type: Spontaneous
  Country: KE (occurrence: None)
  Receive Date: 20150924
  Receipt Date: 20150924
  Transmission Date: 20151125
  Serious: Yes (Other)
  Sender: FDA-Public Use
  Company Number: 2015HINLIT0780

PATIENT
  Age: 18 Month
  Sex: Female

DRUGS (4)
  1. ABACAVIR (ABACAVIR) [Suspect]
     Active Substance: ABACAVIR
     Indication: PERINATAL HIV INFECTION
  2. COTRIMOXAZOLE (COTRIMOXAZOLE) UNKNOWN [Concomitant]
  3. LAMIVUDINE (LAMIVUDINE) UNKNOWN [Suspect]
     Active Substance: LAMIVUDINE
     Indication: PERINATAL HIV INFECTION
  4. NEVIRAPINE. [Suspect]
     Active Substance: NEVIRAPINE
     Indication: PERINATAL HIV INFECTION

REACTIONS (3)
  - Hypersensitivity [None]
  - Pneumonia [None]
  - Haemoglobin decreased [None]
